FAERS Safety Report 5820101-0 (Version None)
Quarter: 2008Q3

REPORT INFORMATION
  Report Type: 
  Country: None (occurrence: None)
  Receive Date: 20080721
  Receipt Date: 20080710
  Transmission Date: 20090109
  Serious: Yes (Hospitalization)
  Sender: FDA-Public Use
  Company Number: 2008BI012571

PATIENT
  Age: 58 Year
  Sex: Female
  Weight: 125.6464 kg

DRUGS (18)
  1. TYSABRI [Suspect]
     Indication: MULTIPLE SCLEROSIS
     Dosage: 300 MG QM IV
     Route: 042
     Dates: start: 20070621, end: 20080414
  2. TIZANIDINE HCL [Concomitant]
  3. ACETAMINOPHEN AND HYDROCODONE BITARTRATE [Concomitant]
  4. AMOXICILLIN- POT CLAVULANATE [Concomitant]
  5. ALLOPURINOL [Concomitant]
  6. COZAAR [Concomitant]
  7. HUMULIN R 100 [Concomitant]
  8. HUMULIN N 100 [Concomitant]
  9. AMANTADINE HCL [Concomitant]
  10. ATENOLOL [Concomitant]
  11. FUROSEMIDE [Concomitant]
  12. ALBUTEROL SULFATE [Concomitant]
  13. SYNTHROID [Concomitant]
  14. POTASSIUM CHLORIDE [Concomitant]
  15. PROCHLORPERAZINE MALEATE [Concomitant]
  16. BACLOFEN [Concomitant]
  17. PRAVASTATIN SODIUM [Concomitant]
  18. NITROGLYCERIN [Concomitant]

REACTIONS (12)
  - ATRIOVENTRICULAR BLOCK FIRST DEGREE [None]
  - BRAIN NATRIURETIC PEPTIDE INCREASED [None]
  - DIABETIC NEPHROPATHY [None]
  - DYSPNOEA [None]
  - FLUID OVERLOAD [None]
  - HAEMATOCRIT DECREASED [None]
  - HAEMOGLOBIN DECREASED [None]
  - OXYGEN SATURATION DECREASED [None]
  - RED BLOOD CELL COUNT DECREASED [None]
  - RED CELL DISTRIBUTION WIDTH INCREASED [None]
  - RENAL FAILURE [None]
  - SINUS BRADYCARDIA [None]
